FAERS Safety Report 16324726 (Version 1)
Quarter: 2019Q2

REPORT INFORMATION
  Report Type: Spontaneous
  Country: US (occurrence: US)
  Receive Date: 20190517
  Receipt Date: 20190517
  Transmission Date: 20190711
  Serious: No
  Sender: FDA-Public Use
  Company Number: US-GALDERMA-US18035716

PATIENT
  Age: 19 Year
  Sex: Male

DRUGS (3)
  1. PROACTIV MD DEEP CLEANSING FACE WASH [Concomitant]
     Active Substance: COSMETICS
     Indication: INGROWN HAIR
     Route: 061
     Dates: start: 20180807, end: 20180812
  2. PROACTIV MD DAILY OIL CONTROL SPF 30 [Suspect]
     Active Substance: AVOBENZONE\OCTISALATE\OCTOCRYLENE
     Indication: INGROWN HAIR
     Route: 061
     Dates: start: 20180807, end: 20180812
  3. PROACTIV MD ADAPALENE ACNE TREATMENT [Suspect]
     Active Substance: ADAPALENE
     Indication: INGROWN HAIR
     Dosage: 0.1%
     Route: 061
     Dates: start: 20180807, end: 20180812

REACTIONS (4)
  - Contusion [Not Recovered/Not Resolved]
  - Rash papular [Not Recovered/Not Resolved]
  - Product use in unapproved indication [Not Recovered/Not Resolved]
  - Pain of skin [Not Recovered/Not Resolved]

NARRATIVE: CASE EVENT DATE: 20180808
